FAERS Safety Report 7096074-2 (Version None)
Quarter: 2010Q4

REPORT INFORMATION
  Report Type: 
  Country: None (occurrence: None)
  Receive Date: 20101111
  Receipt Date: 20101102
  Transmission Date: 20110411
  Serious: Yes (Hospitalization)
  Sender: FDA-Public Use
  Company Number: US-ROCHE-713709

PATIENT
  Sex: Male
  Weight: 54.5 kg

DRUGS (7)
  1. BEVACIZUMAB [Suspect]
     Indication: METASTATIC GASTRIC CANCER
     Dosage: STRENGTH OF 400 MG /16 ML.
     Route: 042
     Dates: start: 20100525, end: 20100920
  2. FLUOROURACIL [Suspect]
     Indication: METASTATIC GASTRIC CANCER
     Dosage: FORM:INFUSION, BOLUS DOSE
     Route: 065
     Dates: start: 20100525
  3. FLUOROURACIL [Suspect]
     Dosage: CONTINUOUS INFUSION:4104 MG
     Route: 065
     Dates: end: 20100527
  4. FLUOROURACIL [Suspect]
     Dosage: DOSE REDUCED, CYCLE 2
     Route: 065
     Dates: start: 20100608
  5. LEUCOVORIN CALCIUM [Suspect]
     Indication: METASTATIC GASTRIC CANCER
     Dosage: DOSE AND FREQUENCY: NOT REPORTED
     Route: 065
  6. ELOXATIN [Suspect]
     Indication: METASTATIC GASTRIC CANCER
     Dosage: DOSE AND FREQUENCY: NOT REPORTED
     Route: 065
  7. FLUOROURACIL/FOLINIC ACID/IRINOTECAN/OXALIPLATIN [Concomitant]
     Dosage: LAST DOSE ADMINISTERED: 20 SEPTEMBER 2010.

REACTIONS (14)
  - ACTIVATED PARTIAL THROMBOPLASTIN TIME PROLONGED [None]
  - ATELECTASIS [None]
  - CONFUSIONAL STATE [None]
  - DYSPNOEA [None]
  - HAEMATOCRIT DECREASED [None]
  - HAEMOGLOBIN DECREASED [None]
  - HYPOXIA [None]
  - LOBAR PNEUMONIA [None]
  - LUNG INFILTRATION [None]
  - PROTHROMBIN TIME SHORTENED [None]
  - PULMONARY EMBOLISM [None]
  - PULMONARY FIBROSIS [None]
  - PYREXIA [None]
  - SPEECH DISORDER [None]
